FAERS Safety Report 10071073 (Version 2)
Quarter: 2014Q2

REPORT INFORMATION
  Report Type: Spontaneous
  Country: CH (occurrence: CH)
  Receive Date: 20140410
  Receipt Date: 20140602
  Transmission Date: 20141212
  Serious: Yes (Hospitalization)
  Sender: FDA-Public Use
  Company Number: CH-ELI_LILLY_AND_COMPANY-CH201404000275

PATIENT
  Age: 43 Year
  Sex: Female
  Weight: 80 kg

DRUGS (8)
  1. EFIENT [Suspect]
     Indication: ACUTE CORONARY SYNDROME
     Dosage: 60 MG, SINGLE
     Route: 048
     Dates: start: 20120110, end: 20120110
  2. EFIENT [Suspect]
     Dosage: 10 MG, QD
     Route: 048
     Dates: start: 20120111, end: 20121030
  3. ASPIRIN CARDIO [Suspect]
     Indication: ACUTE CORONARY SYNDROME
     Dosage: UNK, SINGLE
     Route: 048
  4. ASPIRIN CARDIO [Suspect]
     Dosage: 100 MG, QD
  5. BELOC ZOK [Concomitant]
     Dosage: 50 MG, QD
  6. LISINOPRIL [Concomitant]
     Dosage: 10 MG, QD
  7. SYMBICORT [Concomitant]
     Dosage: UNK
  8. DAFALGAN [Concomitant]

REACTIONS (2)
  - Anaemia macrocytic [Recovered/Resolved]
  - Haemorrhage [Recovered/Resolved]
